FAERS Safety Report 6904899-6 (Version None)
Quarter: 2010Q3

REPORT INFORMATION
  Report Type: 
  Country: None (occurrence: None)
  Receive Date: 20100804
  Receipt Date: 20090730
  Transmission Date: 20110219
  Serious: No
  Sender: FDA-Public Use
  Company Number: US-PFIZER INC-2009249469

PATIENT
  Age: 80 Year
  Sex: Female

DRUGS (6)
  1. LYRICA [Suspect]
     Indication: BACK PAIN
     Dosage: 75 MG, 1X/DAY
     Route: 048
     Dates: start: 20080101
  2. DORZOLAMIDE HYDROCHLORIDE AND TIMOLOL MALEATE [Concomitant]
     Dosage: UNK
     Route: 061
  3. TRAVOPROST [Concomitant]
     Dosage: UNK
     Route: 061
  4. PILOCARPINE HYDROCHLORIDE [Concomitant]
     Dosage: UNK
     Route: 061
  5. LEVOTHYROXINE SODIUM [Concomitant]
     Dosage: UNK
     Route: 048
  6. VITAMIN TAB [Concomitant]
     Dosage: UNK
     Route: 048

REACTIONS (1)
  - VISION BLURRED [None]
